FAERS Safety Report 15586021 (Version 8)
Quarter: 2019Q3

REPORT INFORMATION
  Report Type: Report from Study
  Country: FR (occurrence: FR)
  Receive Date: 20181105
  Receipt Date: 20190821
  Transmission Date: 20191004
  Serious: Yes (Death, Hospitalization, Other)
  Sender: FDA-Public Use
  Company Number: FR-BRISTOL-MYERS SQUIBB COMPANY-BMS-2017-122222

PATIENT
  Age: 61 Year
  Sex: Male
  Weight: 110 kg

DRUGS (10)
  1. FUROSEMIDE. [Concomitant]
     Active Substance: FUROSEMIDE
     Indication: PRODUCT USED FOR UNKNOWN INDICATION
     Dosage: UNK
     Route: 065
  2. NIVOLUMAB [Suspect]
     Active Substance: NIVOLUMAB
     Indication: RENAL CANCER
     Dosage: UNK
     Route: 042
  3. CABOMETYX [Suspect]
     Active Substance: CABOZANTINIB S-MALATE
     Indication: RENAL CANCER
     Dosage: UNK
     Route: 048
     Dates: start: 20180502, end: 20180604
  4. SUTENT [Suspect]
     Active Substance: SUNITINIB MALATE
     Indication: METASTATIC RENAL CELL CARCINOMA
     Dosage: 50 MG, CYCLIC (4 WEEKS OUT OF 6)
     Route: 065
     Dates: start: 20151027
  5. ESOMEPRAZOLE. [Concomitant]
     Active Substance: ESOMEPRAZOLE MAGNESIUM
     Indication: PRODUCT USED FOR UNKNOWN INDICATION
     Dosage: UNK
     Route: 065
  6. SUTENT [Suspect]
     Active Substance: SUNITINIB MALATE
     Indication: PRODUCT USED FOR UNKNOWN INDICATION
     Dosage: 50 MG, CYCLIC (2 WEEKS OUT OF 3)
     Route: 065
     Dates: start: 20151124
  7. GLIMEPIRIDE. [Concomitant]
     Active Substance: GLIMEPIRIDE
     Indication: DIABETES MELLITUS
     Dosage: UNK
     Route: 048
  8. KARDEGIC [Concomitant]
     Active Substance: ASPIRIN DL-LYSINE
     Indication: CARDIAC DISORDER
     Dosage: UNK
     Route: 048
  9. SUTENT [Suspect]
     Active Substance: SUNITINIB MALATE
     Indication: PRODUCT USED FOR UNKNOWN INDICATION
     Dosage: 50 MG, CYCLIC (2 WEEKS OUT OF 3)
     Route: 065
     Dates: start: 20151210, end: 20160412
  10. ATORVASTATIN [Concomitant]
     Active Substance: ATORVASTATIN
     Indication: HYPERCHOLESTEROLAEMIA
     Dosage: UNK
     Route: 048

REACTIONS (21)
  - Vomiting [Recovering/Resolving]
  - Hypercalcaemia [Recovered/Resolved]
  - Decreased appetite [Recovering/Resolving]
  - Asthenia [Recovering/Resolving]
  - Chest discomfort [Recovered/Resolved]
  - Renal failure [Not Recovered/Not Resolved]
  - Diarrhoea [Recovering/Resolving]
  - Mucosal inflammation [Recovered/Resolved]
  - Chest pain [Recovered/Resolved]
  - Rash pruritic [Recovered/Resolved]
  - Musculoskeletal pain [Recovered/Resolved]
  - Fall [Recovered/Resolved]
  - Malignant neoplasm progression [Fatal]
  - Pruritus [Recovered/Resolved]
  - Electrocardiogram abnormal [Unknown]
  - Anaemia [Recovering/Resolving]
  - Decubitus ulcer [Unknown]
  - Tachycardia [Recovered/Resolved]
  - General physical condition abnormal [Not Recovered/Not Resolved]
  - Ageusia [Recovering/Resolving]
  - Weight decreased [Unknown]

NARRATIVE: CASE EVENT DATE: 20151124
